FAERS Safety Report 6190188-7 (Version None)
Quarter: 2009Q2

REPORT INFORMATION
  Report Type: 
  Country: None (occurrence: None)
  Receive Date: 20090427
  Receipt Date: 20080523
  Transmission Date: 20091009
  Serious: Yes (Hospitalization)
  Sender: FDA-Public Use
  Company Number: WAES 0805USA05081

PATIENT
  Age: 36 Month
  Sex: Male

DRUGS (2)
  1. SINGULAIR [Suspect]
     Indication: HYPERSENSITIVITY
     Dosage: 4 MG/DAILY/PO
     Route: 048
     Dates: start: 20080401, end: 20080516
  2. SINGULAIR [Suspect]
     Indication: HYPERSENSITIVITY
     Dosage: 4 MG/DAILY/PO
     Route: 048
     Dates: start: 20070901

REACTIONS (5)
  - ABNORMAL DREAMS [None]
  - MUSCLE TWITCHING [None]
  - PYREXIA [None]
  - SCREAMING [None]
  - SWELLING FACE [None]
